FAERS Safety Report 25524987 (Version 2)
Quarter: 2025Q3

REPORT INFORMATION
  Report Type: Spontaneous
  Country: AU (occurrence: AU)
  Receive Date: 20250707
  Receipt Date: 20250810
  Transmission Date: 20251021
  Serious: Yes (Death, Other)
  Sender: ALEXION PHARMACEUTICALS
  Company Number: AU-ASTRAZENECA-202507OCE001575AU

PATIENT

DRUGS (6)
  1. DAPAGLIFLOZIN [Suspect]
     Active Substance: DAPAGLIFLOZIN
  2. BISOPROLOL FUMARATE [Suspect]
     Active Substance: BISOPROLOL FUMARATE
  3. FUROSEMIDE [Suspect]
     Active Substance: FUROSEMIDE
  4. IVABRADINE [Suspect]
     Active Substance: IVABRADINE
  5. SACUBITRIL [Concomitant]
     Active Substance: SACUBITRIL
     Route: 065
  6. SPIRONOLACTONE [Concomitant]
     Active Substance: SPIRONOLACTONE
     Route: 065

REACTIONS (2)
  - Foetal exposure during pregnancy [Fatal]
  - Foetal malformation [Fatal]
